FAERS Safety Report 5822990-2 (Version None)
Quarter: 2008Q3

REPORT INFORMATION
  Report Type: 
  Country: None (occurrence: None)
  Receive Date: 20080725
  Receipt Date: 20080715
  Transmission Date: 20090109
  Serious: Yes (Other)
  Sender: FDA-Public Use
  Company Number: B0502662A

PATIENT
  Sex: Male

DRUGS (9)
  1. SEROXAT [Suspect]
     Indication: DRUG USE FOR UNKNOWN INDICATION
     Dates: start: 20000601, end: 20050917
  2. MIRTAZAPINE [Concomitant]
     Dates: start: 20021001, end: 20080401
  3. ANAFRANIL [Concomitant]
  4. SULPIRIDE [Concomitant]
  5. ZOPICLONE [Concomitant]
  6. DIAZEPAM [Concomitant]
     Dates: start: 20050101
  7. COPROXAMOL [Concomitant]
     Dates: end: 20071201
  8. VENLAFAXINE HCL [Concomitant]
     Dates: start: 20080401
  9. FLUOXETINE [Concomitant]
     Dates: start: 19980101

REACTIONS (11)
  - AGGRESSION [None]
  - AGITATION [None]
  - ANGER [None]
  - CRYING [None]
  - DEPRESSED MOOD [None]
  - DRUG WITHDRAWAL SYNDROME [None]
  - EMOTIONAL DISORDER [None]
  - INSOMNIA [None]
  - MALAISE [None]
  - NIGHTMARE [None]
  - VERBAL ABUSE [None]
